FAERS Safety Report 6039591-6 (Version None)
Quarter: 2009Q1

REPORT INFORMATION
  Report Type: 
  Country: None (occurrence: None)
  Receive Date: 20090116
  Receipt Date: 20090112
  Transmission Date: 20090719
  Serious: Yes (Life-Threatening)
  Sender: FDA-Public Use
  Company Number: US-BRISTOL-MYERS SQUIBB COMPANY-14468235

PATIENT
  Age: 30 Year
  Sex: Female

DRUGS (1)
  1. METFORMIN HCL [Suspect]
     Route: 048

REACTIONS (3)
  - INTENTIONAL OVERDOSE [None]
  - LACTIC ACIDOSIS [None]
  - SUICIDE ATTEMPT [None]
